FAERS Safety Report 15571794 (Version 1)
Quarter: 2018Q4

REPORT INFORMATION
  Report Type: Spontaneous
  Country: US (occurrence: US)
  Receive Date: 20181031
  Receipt Date: 20181031
  Transmission Date: 20190205
  Serious: Yes (Other)
  Sender: FDA-Public Use
  Company Number: US-SA-2018SA297869

PATIENT
  Age: 35 Year
  Sex: Male

DRUGS (2)
  1. ONDANSETRON [Suspect]
     Active Substance: ONDANSETRON
     Indication: NAUSEA
     Dosage: UNK UNK, UNK
     Route: 042
  2. MOZOBIL [Suspect]
     Active Substance: PLERIXAFOR
     Indication: APHERESIS
     Dosage: 16 MG, QD
     Route: 065
     Dates: start: 20181014, end: 20181014

REACTIONS (6)
  - Mental status changes [Recovered/Resolved]
  - Seizure [Unknown]
  - Throat tightness [Recovered/Resolved]
  - Loss of consciousness [Unknown]
  - Nausea [Unknown]
  - Dizziness [Recovered/Resolved]

NARRATIVE: CASE EVENT DATE: 20181014
